FAERS Safety Report 4366937-7 (Version None)
Quarter: 2004Q2

REPORT INFORMATION
  Report Type: 
  Country: None (occurrence: None)
  Receive Date: 20040527
  Receipt Date: 20040527
  Transmission Date: 20050107
  Serious: Yes (Death)
  Sender: FDA-Public Use
  Company Number: None

PATIENT
  Age: 38 Year
  Sex: Female

DRUGS (7)
  1. MORPHINE [Suspect]
     Indication: LIFE SUPPORT
     Dosage: 20 MG Q1HR IV
     Route: 042
  2. MORPHINE [Suspect]
     Indication: DISCOMFORT
     Dosage: 5 MG Q2HR IV
     Route: 042
  3. LORAZEPAM [Concomitant]
  4. REGLAN [Concomitant]
  5. BISACODYL [Concomitant]
  6. PEPCID [Concomitant]
  7. NARCAN (NALOXONE) [Concomitant]

REACTIONS (5)
  - CONSTIPATION [None]
  - ENTERAL NUTRITION [None]
  - FOOD INTOLERANCE [None]
  - IMPAIRED GASTRIC EMPTYING [None]
  - RESPIRATORY FAILURE [None]
